FAERS Safety Report 24738773 (Version 1)
Quarter: 2024Q4

REPORT INFORMATION
  Report Type: Spontaneous
  Country: US (occurrence: US)
  Receive Date: 20241216
  Receipt Date: 20241216
  Transmission Date: 20250115
  Serious: Yes (Hospitalization, Other)
  Sender: AMGEN
  Company Number: US-AMGEN-USASP2024244020

PATIENT
  Age: 36 Year
  Sex: Male

DRUGS (1)
  1. ADALIMUMAB [Suspect]
     Active Substance: ADALIMUMAB
     Indication: Crohn^s disease
     Dosage: UNK
     Route: 065

REACTIONS (6)
  - Megacolon [Unknown]
  - Malnutrition [Unknown]
  - Achromobacter infection [Unknown]
  - Oesophageal candidiasis [Unknown]
  - Perirectal abscess [Unknown]
  - Meningitis bacterial [Unknown]
